FAERS Safety Report 4733374-2 (Version None)
Quarter: 2005Q3

REPORT INFORMATION
  Report Type: 
  Country: None (occurrence: None)
  Receive Date: 20050801
  Receipt Date: 20050801
  Transmission Date: 20060218
  Serious: Yes (Hospitalization)
  Sender: FDA-Public Use
  Company Number: None

PATIENT
  Age: 65 Year
  Sex: Male

DRUGS (6)
  1. IBUPROFEN [Suspect]
     Indication: PAIN
     Dosage: 800 MG Q8 H
     Dates: start: 20041007
  2. LISINOPRIL [Suspect]
     Indication: HYPERTENSION
     Dosage: 5 MG QD
     Dates: start: 20041001
  3. NYSTATIN [Concomitant]
  4. TERAZOSIN [Concomitant]
  5. ZOCOR [Concomitant]
  6. LORATADINE [Concomitant]

REACTIONS (1)
  - RENAL FAILURE ACUTE [None]
